FAERS Safety Report 7379965-4 (Version None)
Quarter: 2011Q1

REPORT INFORMATION
  Report Type: 
  Country: None (occurrence: None)
  Receive Date: 20110324
  Receipt Date: 20110324
  Transmission Date: 20110831
  Serious: Yes (Hospitalization)
  Sender: FDA-Public Use
  Company Number: None

PATIENT
  Age: 59 Year
  Sex: Male
  Weight: 73.7 kg

DRUGS (12)
  1. BEVACIZUMAB [Suspect]
     Indication: NON-SMALL CELL LUNG CANCER
     Dosage: 15MG/KG, IV DAY 1 Q3W
     Route: 042
     Dates: start: 20110302
  2. DEXAMETHASONE [Concomitant]
  3. LEVOTHYROXINE [Concomitant]
  4. PROCHLORPERAZINE TAB [Concomitant]
  5. ALBUTEROL [Concomitant]
  6. CODEINE/GUAIFENESIN [Concomitant]
  7. PEGFILGRASTIM [Concomitant]
  8. MINOCYCLINE [Concomitant]
  9. GEMCITABINE [Suspect]
     Indication: NON-SMALL CELL LUNG CANCER
     Dosage: 900MG/M2, IV DAYS1+8 Q3W
     Route: 042
     Dates: start: 20110302
  10. GEMCITABINE [Suspect]
     Indication: NON-SMALL CELL LUNG CANCER
     Dosage: 900MG/M2, IV DAYS1+8 Q3W
     Route: 042
     Dates: start: 20110309
  11. DOCETAXEL [Suspect]
     Indication: NON-SMALL CELL LUNG CANCER
     Dosage: 75MG/M2, IV DAY 1 Q3W
     Route: 042
     Dates: start: 20110302
  12. GUAIFENESIN [Concomitant]

REACTIONS (5)
  - EMBOLISM ARTERIAL [None]
  - PNEUMONITIS [None]
  - PNEUMONIA [None]
  - REFUSAL OF TREATMENT BY PATIENT [None]
  - DEEP VEIN THROMBOSIS [None]
